FAERS Safety Report 7787472-X (Version None)
Quarter: 2011Q3

REPORT INFORMATION
  Report Type: 
  Country: None (occurrence: None)
  Receive Date: 20110929
  Receipt Date: 20110921
  Transmission Date: 20111222
  Serious: No
  Sender: FDA-Public Use
  Company Number: DE-ACTELION-A-CH2009-25387

PATIENT
  Sex: Female

DRUGS (4)
  1. TRACLEER [Suspect]
     Indication: ACCIDENTAL EXPOSURE
     Route: 048
  2. CONTRACEPTIVES [Concomitant]
  3. METAMIZOLE [Concomitant]
  4. ANTIBIOTICS [Concomitant]

REACTIONS (4)
  - ACCIDENTAL EXPOSURE [None]
  - PRODUCT QUALITY ISSUE [None]
  - PREGNANCY [None]
  - NORMAL NEWBORN [None]
